FAERS Safety Report 19803349 (Version 1)
Quarter: 2021Q3

REPORT INFORMATION
  Report Type: Report from Study
  Country: AR (occurrence: AR)
  Receive Date: 20210908
  Receipt Date: 20210908
  Transmission Date: 20211014
  Serious: Yes (Hospitalization)
  Sender: FDA-Public Use
  Company Number: AR-SA-2021SA200517

PATIENT
  Age: 47 Year
  Sex: Female

DRUGS (1)
  1. SEVELAMER CARBONATE. [Suspect]
     Active Substance: SEVELAMER CARBONATE
     Indication: HYPERPHOSPHATAEMIA
     Dosage: 4 DF, QD
     Route: 048
     Dates: start: 20200207

REACTIONS (4)
  - Diarrhoea [Recovering/Resolving]
  - Infection [Not Recovered/Not Resolved]
  - Diabetic foot [Not Recovered/Not Resolved]
  - Food intolerance [Recovering/Resolving]
